FAERS Safety Report 10045145 (Version 1)
Quarter: 2014Q1

REPORT INFORMATION
  Report Type: Spontaneous
  Country: GB (occurrence: GB)
  Receive Date: 20140328
  Receipt Date: 20140328
  Transmission Date: 20141002
  Serious: Yes (Life-Threatening, Hospitalization, Other)
  Sender: FDA-Public Use
  Company Number: GB-ELI_LILLY_AND_COMPANY-GB201403008275

PATIENT
  Age: 50 Year
  Sex: Male

DRUGS (4)
  1. CIALIS [Suspect]
     Indication: ERECTILE DYSFUNCTION
     Dosage: 2.5 MG, PRN
     Route: 048
     Dates: start: 201206, end: 201208
  2. CIALIS [Suspect]
     Dosage: 2.5 MG, QD
     Route: 048
     Dates: start: 201208
  3. CIALIS [Suspect]
     Dosage: 5 MG, QD
     Route: 048
  4. TESTOGEL [Concomitant]

REACTIONS (2)
  - Cardiac arrest [Recovered/Resolved]
  - Drug ineffective [Not Recovered/Not Resolved]
